FAERS Safety Report 17743190 (Version 3)
Quarter: 2020Q3

REPORT INFORMATION
  Report Type: Spontaneous
  Country: US (occurrence: US)
  Receive Date: 20200504
  Receipt Date: 20200818
  Transmission Date: 20201102
  Serious: Yes (Other)
  Sender: FDA-Public Use
  Company Number: US-BAYER-2020-071361

PATIENT
  Age: 67 Year
  Sex: Female

DRUGS (3)
  1. NEXAVAR [Suspect]
     Active Substance: SORAFENIB
     Indication: HEPATOCELLULAR CARCINOMA
     Dosage: 400 MG, QD
  2. NEXAVAR [Suspect]
     Active Substance: SORAFENIB
     Indication: HEPATOCELLULAR CARCINOMA
     Dosage: 200 MG, BID
     Dates: start: 20200415
  3. NEXAVAR [Suspect]
     Active Substance: SORAFENIB
     Indication: HEPATOCELLULAR CARCINOMA
     Dosage: 200 MG, BID
     Dates: start: 20190513

REACTIONS (11)
  - Dysuria [None]
  - Product dose omission in error [Unknown]
  - Rash [Unknown]
  - Memory impairment [None]
  - Off label use [None]
  - Chest pain [Unknown]
  - Pain in extremity [None]
  - Renal disorder [Unknown]
  - Constipation [None]
  - Product use issue [None]
  - Renal failure [None]

NARRATIVE: CASE EVENT DATE: 20190513
